FAERS Safety Report 7857858-3 (Version None)
Quarter: 2011Q4

REPORT INFORMATION
  Report Type: 
  Country: None (occurrence: None)
  Receive Date: 20111027
  Receipt Date: 20110221
  Transmission Date: 20120403
  Serious: No
  Sender: FDA-Public Use
  Company Number: US-BAYER-2011-017139

PATIENT
  Sex: Male
  Weight: 58 kg

DRUGS (3)
  1. BENADRYL [Concomitant]
     Dosage: UNK UNK, ONCE
     Route: 048
  2. ALEVE (CAPLET) [Suspect]
     Dosage: 2 DF, BID
     Route: 048
     Dates: start: 20110210
  3. ASPIRIN [Concomitant]
     Dosage: 2 DF, ONCE
     Route: 048

REACTIONS (2)
  - DIARRHOEA [None]
  - MEDICATION ERROR [None]
